FAERS Safety Report 14092515 (Version 1)
Quarter: 2017Q4

REPORT INFORMATION
  Report Type: Spontaneous
  Country: GB (occurrence: GB)
  Receive Date: 20171016
  Receipt Date: 20171016
  Transmission Date: 20180321
  Serious: Yes (Other)
  Sender: FDA-Public Use
  Company Number: GB-TEVA-814172ACC

PATIENT
  Sex: Female

DRUGS (1)
  1. ACTAVIS GROUP PTC TOPIRAMATE [Suspect]
     Active Substance: TOPIRAMATE

REACTIONS (5)
  - Product substitution issue [Unknown]
  - Tremor [Unknown]
  - Pain [Unknown]
  - Diplopia [Unknown]
  - Drug ineffective [Unknown]

NARRATIVE: CASE EVENT DATE: 20170921
